FAERS Safety Report 7471926-X (Version None)
Quarter: 2011Q2

REPORT INFORMATION
  Report Type: 
  Country: None (occurrence: None)
  Receive Date: 20110511
  Receipt Date: 20100719
  Transmission Date: 20111010
  Serious: Yes (Other)
  Sender: FDA-Public Use
  Company Number: A0872397A

PATIENT
  Sex: Female

DRUGS (1)
  1. TYKERB [Suspect]

REACTIONS (1)
  - BLOOD BILIRUBIN INCREASED [None]
